FAERS Safety Report 5115450-8 (Version None)
Quarter: 2006Q3

REPORT INFORMATION
  Report Type: 
  Country: None (occurrence: None)
  Receive Date: 20060921
  Receipt Date: 20060912
  Transmission Date: 20061208
  Serious: Yes (Other)
  Sender: FDA-Public Use
  Company Number: HQWYE584112SEP06

PATIENT
  Age: 25 Year
  Sex: Female

DRUGS (2)
  1. NEOVLAR          (LEVONORGESTREL/ETHINYL ESTRADIOL, TABLET) [Suspect]
     Indication: ORAL CONTRACEPTION
     Dosage: 1 TABLET 1X PER  1 DAY
     Route: 048
     Dates: start: 19970101, end: 20060822
  2. DIPYRONE             (METAMIZOLE SODIUM) [Concomitant]

REACTIONS (6)
  - ABORTION SPONTANEOUS [None]
  - DRUG EXPOSURE DURING PREGNANCY [None]
  - INAPPROPRIATE SCHEDULE OF DRUG ADMINISTRATION [None]
  - PELVIC PAIN [None]
  - POST ABORTION HAEMORRHAGE [None]
  - PREGNANCY ON ORAL CONTRACEPTIVE [None]
